FAERS Safety Report 12482338 (Version 1)
Quarter: 2016Q2

REPORT INFORMATION
  Report Type: Report from Study
  Country: US (occurrence: US)
  Receive Date: 20160620
  Receipt Date: 20160620
  Transmission Date: 20160815
  Serious: No
  Sender: FDA-Public Use
  Company Number: US-THERATECHNOLOGIES, INC.-TH-2016-00062

PATIENT
  Age: 65 Year
  Sex: Male
  Weight: 83.08 kg

DRUGS (4)
  1. VIREAD [Concomitant]
     Active Substance: TENOFOVIR DISOPROXIL FUMARATE
     Indication: HIV INFECTION
     Dosage: 300 MILLIGRAM
     Dates: start: 2007
  2. VIRAMUNE [Concomitant]
     Active Substance: NEVIRAPINE
     Indication: HIV INFECTION
     Dosage: 400 MILLIGRAM
     Dates: start: 2007
  3. EGRIFTA [Suspect]
     Active Substance: TESAMORELIN
     Indication: CENTRAL OBESITY
     Dosage: 2 MILLIGRAM
     Route: 058
     Dates: start: 20160317
  4. EPZICUM [Concomitant]
     Indication: HIV INFECTION
     Dosage: 600 MILLIGRAM
     Dates: start: 2007

REACTIONS (1)
  - Injection site pain [Not Recovered/Not Resolved]

NARRATIVE: CASE EVENT DATE: 20160317
